FAERS Safety Report 14215548 (Version 2)
Quarter: 2018Q1

REPORT INFORMATION
  Report Type: Spontaneous
  Country: AU (occurrence: AU)
  Receive Date: 20171122
  Receipt Date: 20180302
  Transmission Date: 20180508
  Serious: Yes (Disabling)
  Sender: FDA-Public Use
  Company Number: AU-ASTRAZENECA-2017SF15432

PATIENT
  Age: 23201 Day
  Sex: Male
  Weight: 78 kg

DRUGS (5)
  1. SYMBICORT [Suspect]
     Active Substance: BUDESONIDE\FORMOTEROL FUMARATE DIHYDRATE
     Dosage: 400/12, 1 PUFF OF SYMBICORT MORNING AND EVENING
     Route: 055
     Dates: start: 20120301
  2. LIPITOR [Concomitant]
     Active Substance: ATORVASTATIN CALCIUM
     Route: 048
  3. OMNARIS [Concomitant]
     Active Substance: CICLESONIDE
     Dosage: 50 MG TWO TIMES A DAY
     Route: 045
  4. SYMBICORT [Suspect]
     Active Substance: BUDESONIDE\FORMOTEROL FUMARATE DIHYDRATE
     Dosage: 400/12, 1 PUFF OF SYMBICORT MORNING AND EVENING
     Route: 055
     Dates: start: 201704, end: 20171101
  5. ZANIDIP [Concomitant]
     Active Substance: LERCANIDIPINE HYDROCHLORIDE
     Route: 048

REACTIONS (5)
  - Pulmonary congestion [Recovering/Resolving]
  - Wheezing [Recovering/Resolving]
  - Product quality issue [Unknown]
  - Dyspnoea [Recovering/Resolving]
  - Drug ineffective [Unknown]

NARRATIVE: CASE EVENT DATE: 20170410
